FAERS Safety Report 20900432 (Version 4)
Quarter: 2022Q4

REPORT INFORMATION
  Report Type: Spontaneous
  Country: DE (occurrence: DE)
  Receive Date: 20220601
  Receipt Date: 20221214
  Transmission Date: 20230113
  Serious: Yes (Life-Threatening, Hospitalization, Other)
  Sender: FDA-Public Use
  Company Number: DE-drreddys-SPO/GER/22/0150245

PATIENT
  Age: 82 Year
  Sex: Male
  Weight: 50 kg

DRUGS (61)
  1. AZACITIDINE [Suspect]
     Active Substance: AZACITIDINE
     Indication: Acute myeloid leukaemia
     Dosage: UNK
     Route: 065
  2. AZACITIDINE [Suspect]
     Active Substance: AZACITIDINE
     Dosage: 75 MILLIGRAM/SQ. METER
     Route: 058
     Dates: start: 20220215, end: 20220221
  3. AZACITIDINE [Suspect]
     Active Substance: AZACITIDINE
     Dosage: 37.5 MILLIGRAM/SQ. METER
     Route: 058
     Dates: start: 20220215, end: 20220221
  4. AZACITIDINE [Suspect]
     Active Substance: AZACITIDINE
     Dosage: 37.5 MG/SQ. METER,LAST DOSE STUDY 42 29 MAR 2022.
     Route: 058
     Dates: start: 20220215, end: 20220221
  5. VENETOCLAX [Suspect]
     Active Substance: VENETOCLAX
     Indication: Acute myeloid leukaemia
     Dosage: UNK
     Route: 065
     Dates: start: 202111, end: 20220404
  6. VENETOCLAX [Suspect]
     Active Substance: VENETOCLAX
     Dosage: 100 MILLIGRAM, QD
     Route: 065
     Dates: start: 20210910, end: 20220404
  7. MOVICOL [Concomitant]
     Active Substance: POLYETHYLENE GLYCOL 3350\POTASSIUM CHLORIDE\SODIUM BICARBONATE\SODIUM CHLORIDE
     Indication: Product used for unknown indication
     Dosage: ONGOING
     Route: 065
     Dates: start: 202003
  8. MELPERONE HYDROCHLORIDE [Concomitant]
     Active Substance: MELPERONE HYDROCHLORIDE
     Indication: Product used for unknown indication
     Dosage: ONGOING
     Route: 065
     Dates: start: 20220302
  9. MELPERONE HYDROCHLORIDE [Concomitant]
     Active Substance: MELPERONE HYDROCHLORIDE
     Dosage: UNK
     Route: 065
     Dates: start: 20220317, end: 20220317
  10. MELPERONE HYDROCHLORIDE [Concomitant]
     Active Substance: MELPERONE HYDROCHLORIDE
     Dosage: UNK
     Route: 065
     Dates: start: 20220319, end: 20220321
  11. MELPERONE HYDROCHLORIDE [Concomitant]
     Active Substance: MELPERONE HYDROCHLORIDE
     Dosage: UNK
     Route: 065
     Dates: start: 20220302, end: 20220329
  12. MELPERONE HYDROCHLORIDE [Concomitant]
     Active Substance: MELPERONE HYDROCHLORIDE
     Dosage: UNK
     Route: 065
     Dates: start: 20220223, end: 20220228
  13. BISOPROLOL [Concomitant]
     Active Substance: BISOPROLOL
     Indication: Product used for unknown indication
     Dosage: ONGOING
     Route: 065
     Dates: start: 202109
  14. VALSARTAN [Concomitant]
     Active Substance: VALSARTAN
     Indication: Product used for unknown indication
     Dosage: ONGOING
     Route: 065
     Dates: start: 202111
  15. PANTOPRAZOLE [Concomitant]
     Active Substance: PANTOPRAZOLE
     Indication: Product used for unknown indication
     Dosage: ONGOING
     Route: 065
     Dates: start: 202001
  16. MAGALDRATE [Concomitant]
     Active Substance: MAGALDRATE
     Indication: Product used for unknown indication
     Dosage: ONGOING
     Route: 065
     Dates: start: 20220228
  17. NALOXONE HYDROCHLORIDE\TILIDINE HYDROCHLORIDE [Concomitant]
     Active Substance: NALOXONE HYDROCHLORIDE\TILIDINE HYDROCHLORIDE
     Indication: Product used for unknown indication
     Dosage: ONGOING
     Route: 065
     Dates: start: 202112, end: 20220329
  18. NALOXONE HYDROCHLORIDE\TILIDINE HYDROCHLORIDE [Concomitant]
     Active Substance: NALOXONE HYDROCHLORIDE\TILIDINE HYDROCHLORIDE
     Dosage: UNK
     Route: 065
     Dates: start: 20220330
  19. POTASSIUM CHLORIDE [Concomitant]
     Active Substance: POTASSIUM CHLORIDE
     Indication: Product used for unknown indication
     Dosage: ONGOING
     Route: 065
     Dates: start: 20220208
  20. FRESUBIN [Concomitant]
     Active Substance: AMINO ACIDS\DEXTROSE\ELECTROLYTES NOS\SOYBEAN OIL\VITAMINS
     Indication: Product used for unknown indication
     Dosage: UNK
     Route: 065
     Dates: start: 202109
  21. ZOLPIDEM [Concomitant]
     Active Substance: ZOLPIDEM TARTRATE
     Indication: Product used for unknown indication
     Dosage: UNK
     Route: 065
     Dates: start: 20220331, end: 20220405
  22. ZOLPIDEM [Concomitant]
     Active Substance: ZOLPIDEM TARTRATE
     Dosage: UNK
     Route: 065
     Dates: start: 20220210, end: 20220211
  23. ZOLPIDEM [Concomitant]
     Active Substance: ZOLPIDEM TARTRATE
     Dosage: UNK
     Route: 065
     Dates: start: 20220214, end: 20220218
  24. ZOLPIDEM [Concomitant]
     Active Substance: ZOLPIDEM TARTRATE
     Dosage: UNK
     Route: 065
     Dates: start: 20220220, end: 20220220
  25. ATROVENT [Concomitant]
     Active Substance: IPRATROPIUM BROMIDE
     Dosage: UNK
     Route: 065
     Dates: start: 20220319, end: 20220322
  26. METAMIZOLE [Concomitant]
     Active Substance: METAMIZOLE
     Dosage: UNK
     Route: 065
     Dates: start: 20220315, end: 20220315
  27. METAMIZOLE [Concomitant]
     Active Substance: METAMIZOLE
     Dosage: UNK
     Route: 065
     Dates: start: 20220318, end: 20220318
  28. METAMIZOLE [Concomitant]
     Active Substance: METAMIZOLE
     Dosage: UNK
     Route: 065
     Dates: start: 20220319, end: 20220321
  29. METAMIZOLE [Concomitant]
     Active Substance: METAMIZOLE
     Dosage: UNK
     Route: 065
     Dates: start: 20220322, end: 20220322
  30. METAMIZOLE [Concomitant]
     Active Substance: METAMIZOLE
     Dosage: UNK
     Route: 065
     Dates: start: 20220330, end: 20220330
  31. PERFALGAN [Concomitant]
     Active Substance: ACETAMINOPHEN
     Dosage: UNK
     Route: 065
     Dates: start: 20220208, end: 20220209
  32. PERFALGAN [Concomitant]
     Active Substance: ACETAMINOPHEN
     Dosage: UNK
     Route: 065
     Dates: start: 20220315, end: 20220315
  33. PERFALGAN [Concomitant]
     Active Substance: ACETAMINOPHEN
     Dosage: UNK
     Route: 065
     Dates: start: 20220316, end: 20220316
  34. POSACONAZOLE [Concomitant]
     Active Substance: POSACONAZOLE
     Dosage: UNK
     Route: 065
     Dates: start: 202111, end: 20220211
  35. POSACONAZOLE [Concomitant]
     Active Substance: POSACONAZOLE
     Dosage: UNK
     Route: 065
     Dates: start: 20220212, end: 20220215
  36. KALIUM CHLORATUM STREULI [Concomitant]
     Dosage: UNK
     Route: 065
     Dates: start: 20220214, end: 20220218
  37. KALIUM CHLORATUM STREULI [Concomitant]
     Dosage: UNK
     Route: 065
     Dates: start: 20220219, end: 20220220
  38. KALIUM CHLORATUM STREULI [Concomitant]
     Dosage: UNK
     Route: 065
     Dates: start: 20220219, end: 20220220
  39. KALIUM CHLORATUM STREULI [Concomitant]
     Dosage: UNK
     Route: 065
     Dates: start: 20220318, end: 20220319
  40. KALIUM CHLORATUM STREULI [Concomitant]
     Dosage: UNK
     Route: 065
     Dates: start: 20220320, end: 20220320
  41. KALIUM CHLORATUM STREULI [Concomitant]
     Dosage: UNK
     Route: 065
     Dates: start: 20220221, end: 20220317
  42. KALIUM CHLORATUM STREULI [Concomitant]
     Dosage: UNK
     Route: 065
     Dates: start: 20220321, end: 20220321
  43. KALIUM CHLORATUM STREULI [Concomitant]
     Dosage: UNK
     Route: 065
     Dates: start: 20220322, end: 20220331
  44. POTASSIUM CARBONATE\POTASSIUM CITRATE [Concomitant]
     Active Substance: POTASSIUM CARBONATE\POTASSIUM CITRATE
     Dosage: UNK
     Route: 065
     Dates: start: 2020, end: 20220216
  45. EVUSHELD [Concomitant]
     Active Substance: CILGAVIMAB\TIXAGEVIMAB
     Dosage: UNK
     Route: 065
     Dates: start: 20220308, end: 20220308
  46. SULTANOL [Concomitant]
     Active Substance: ALBUTEROL SULFATE
     Dosage: UNK
     Route: 065
     Dates: start: 20220319, end: 20220322
  47. HYDROMORPHONE [Concomitant]
     Active Substance: HYDROMORPHONE
     Dosage: UNK
     Route: 065
     Dates: start: 20210221, end: 20220308
  48. HYDROMORPHONE [Concomitant]
     Active Substance: HYDROMORPHONE
     Dosage: UNK
     Route: 065
     Dates: start: 20210219, end: 20210219
  49. DEXAMETHASONE [Concomitant]
     Active Substance: DEXAMETHASONE
     Dosage: UNK
     Route: 065
     Dates: start: 20210315, end: 20210321
  50. DEXAMETHASONE [Concomitant]
     Active Substance: DEXAMETHASONE
     Dosage: UNK
     Route: 065
     Dates: start: 20220315, end: 20220323
  51. GRANISETRON [Concomitant]
     Active Substance: GRANISETRON
     Dosage: UNK
     Route: 065
     Dates: start: 20220215, end: 20220221
  52. GRANISETRON [Concomitant]
     Active Substance: GRANISETRON
     Dosage: UNK
     Route: 065
     Dates: start: 20220315, end: 20220321
  53. PIPERACILLIN SODIUM\TAZOBACTAM SODIUM [Concomitant]
     Active Substance: PIPERACILLIN SODIUM\TAZOBACTAM SODIUM
     Dosage: UNK
     Route: 065
     Dates: start: 20220207, end: 20220207
  54. PIPERACILLIN SODIUM\TAZOBACTAM SODIUM [Concomitant]
     Active Substance: PIPERACILLIN SODIUM\TAZOBACTAM SODIUM
     Dosage: UNK
     Route: 065
     Dates: start: 20220214, end: 20220214
  55. PIPERACILLIN SODIUM\TAZOBACTAM SODIUM [Concomitant]
     Active Substance: PIPERACILLIN SODIUM\TAZOBACTAM SODIUM
     Dosage: UNK
     Route: 065
     Dates: start: 20220208, end: 20220313
  56. PIPERACILLIN SODIUM\TAZOBACTAM SODIUM [Concomitant]
     Active Substance: PIPERACILLIN SODIUM\TAZOBACTAM SODIUM
     Dosage: UNK
     Route: 065
     Dates: start: 20220316, end: 20220322
  57. PIPERACILLIN SODIUM\TAZOBACTAM SODIUM [Concomitant]
     Active Substance: PIPERACILLIN SODIUM\TAZOBACTAM SODIUM
     Dosage: UNK
     Route: 065
     Dates: start: 20220323, end: 20220323
  58. AMOXICILLIN\CLAVULANATE POTASSIUM [Concomitant]
     Active Substance: AMOXICILLIN\CLAVULANATE POTASSIUM
     Dosage: UNK
     Route: 065
     Dates: start: 20220323, end: 20220327
  59. RINGERS SOLUTION [Concomitant]
     Active Substance: CALCIUM CHLORIDE\POTASSIUM CHLORIDE\SODIUM CHLORIDE
     Dosage: UNK
     Route: 065
     Dates: start: 20220207, end: 20220207
  60. RINGERS SOLUTION [Concomitant]
     Active Substance: CALCIUM CHLORIDE\POTASSIUM CHLORIDE\SODIUM CHLORIDE
     Dosage: UNK
     Route: 065
     Dates: start: 20220208, end: 20220208
  61. RINGERS SOLUTION [Concomitant]
     Active Substance: CALCIUM CHLORIDE\POTASSIUM CHLORIDE\SODIUM CHLORIDE
     Dosage: UNK
     Route: 065
     Dates: start: 20220209, end: 20220214

REACTIONS (39)
  - Disease progression [Recovered/Resolved]
  - Back pain [Recovered/Resolved]
  - Thrombocytopenia [Recovered/Resolved]
  - Catheter site infection [Recovered/Resolved]
  - Febrile neutropenia [Recovered/Resolved]
  - Localised infection [Unknown]
  - Atypical pneumonia [Recovered/Resolved]
  - Bronchopulmonary aspergillosis [Recovered/Resolved]
  - Enterococcal infection [Unknown]
  - Atypical pneumonia [Recovered/Resolved]
  - Pneumonia klebsiella [Unknown]
  - Computerised tomogram thorax abnormal [Recovered/Resolved]
  - General physical health deterioration [Unknown]
  - Productive cough [Recovered/Resolved]
  - Euthyroid sick syndrome [Recovered/Resolved]
  - Night sweats [Not Recovered/Not Resolved]
  - Sleep disorder [Not Recovered/Not Resolved]
  - Pain [Recovered/Resolved]
  - Sarcopenia [Not Recovered/Not Resolved]
  - Wound haemorrhage [Recovered/Resolved]
  - Alopecia [Not Recovered/Not Resolved]
  - Chills [Recovered/Resolved]
  - Klebsiella infection [Unknown]
  - Epstein-Barr virus infection [Unknown]
  - Anaemia [Recovered/Resolved]
  - Bronchitis [Recovered/Resolved]
  - Diarrhoea [Recovered/Resolved]
  - Sinusitis [Recovered/Resolved]
  - Constipation [Recovered/Resolved]
  - Abdominal pain upper [Recovered/Resolved]
  - Asthenia [Not Recovered/Not Resolved]
  - Petechiae [Not Recovered/Not Resolved]
  - Staphylococcal infection [Unknown]
  - Nausea [Recovered/Resolved]
  - Vomiting [Recovered/Resolved]
  - Chest pain [Recovered/Resolved]
  - Fungal infection [Unknown]
  - Candida infection [Unknown]
  - Product administration interrupted [Recovered/Resolved]

NARRATIVE: CASE EVENT DATE: 20220207
